FAERS Safety Report 11072592 (Version 1)
Quarter: 2015Q2

REPORT INFORMATION
  Report Type: Spontaneous
  Country: US (occurrence: US)
  Receive Date: 20150428
  Receipt Date: 20150428
  Transmission Date: 20150821
  Serious: No
  Sender: FDA-Public Use
  Company Number: US-MYLANLABS-2014M1012211

PATIENT
  Age: 68 Year
  Sex: Female

DRUGS (6)
  1. METHIMAZOLE TABLETS, USP [Suspect]
     Active Substance: METHIMAZOLE
     Indication: HYPERTHYROIDISM
     Dosage: 40 MG, QD
     Route: 048
     Dates: start: 20140916, end: 20141104
  2. ATENOLOL. [Concomitant]
     Active Substance: ATENOLOL
     Indication: HYPERTENSION
     Dosage: 25 MG, QD
     Route: 048
  3. METHIMAZOLE TABLETS, USP [Suspect]
     Active Substance: METHIMAZOLE
     Dosage: 15 MG, QD
     Route: 048
     Dates: start: 20141120, end: 20141121
  4. METHIMAZOLE TABLETS, USP [Suspect]
     Active Substance: METHIMAZOLE
     Dosage: 15 MG, QD
     Route: 048
     Dates: start: 20141124, end: 20141125
  5. HYDROCHLOROTHIAZIDE. [Concomitant]
     Active Substance: HYDROCHLOROTHIAZIDE
     Indication: HYPERTENSION
     Dosage: 12.5 MG, QD
     Route: 048
  6. METHIMAZOLE TABLETS, USP [Suspect]
     Active Substance: METHIMAZOLE
     Dosage: 10 MG, QD
     Route: 048
     Dates: start: 20141105, end: 20141119

REACTIONS (4)
  - Pain [Recovering/Resolving]
  - Dehydration [Recovered/Resolved]
  - Muscle spasms [Not Recovered/Not Resolved]
  - Sleep disorder [Recovered/Resolved]

NARRATIVE: CASE EVENT DATE: 20140921
